FAERS Safety Report 8579938-X (Version None)
Quarter: 2012Q3

REPORT INFORMATION
  Report Type: 
  Country: None (occurrence: None)
  Receive Date: 20120808
  Receipt Date: 20120726
  Transmission Date: 20120928
  Serious: Yes (Other)
  Sender: FDA-Public Use
  Company Number: AU-ELI_LILLY_AND_COMPANY-AU201207006547

PATIENT
  Sex: Female

DRUGS (1)
  1. ZYPREXA RELPREVV [Suspect]
     Dosage: 300 MG, 2/M

REACTIONS (1)
  - POST PROCEDURAL COMPLICATION [None]
